FAERS Safety Report 5355564-0 (Version None)
Quarter: 2007Q2

REPORT INFORMATION
  Report Type: 
  Country: None (occurrence: None)
  Receive Date: 20070525
  Receipt Date: 20070207
  Transmission Date: 20071010
  Serious: Yes (Hospitalization, Other)
  Sender: FDA-Public Use
  Company Number: WAES 0702USA00965

PATIENT
  Age: 79 Year
  Sex: Female
  Weight: 77.1115 kg

DRUGS (3)
  1. VYTORIN [Suspect]
     Indication: DYSLIPIDAEMIA
     Dosage: 10-80 MG/DAILY/PO
     Route: 048
     Dates: start: 20060612, end: 20060911
  2. VYTORIN [Suspect]
     Indication: DYSLIPIDAEMIA
     Dosage: 10-80 MG/DAILY/PO
     Route: 048
     Dates: start: 20061010
  3. TOPROL-XL [Concomitant]

REACTIONS (5)
  - ALANINE AMINOTRANSFERASE INCREASED [None]
  - BLOOD CREATINE PHOSPHOKINASE INCREASED [None]
  - MUSCULAR WEAKNESS [None]
  - MUSCULOSKELETAL DISCOMFORT [None]
  - MYALGIA [None]
